FAERS Safety Report 25060996 (Version 6)
Quarter: 2025Q3

REPORT INFORMATION
  Report Type: Report from Study
  Country: CA (occurrence: CA)
  Receive Date: 20250310
  Receipt Date: 20250809
  Transmission Date: 20251020
  Serious: Yes (Hospitalization, Other)
  Sender: ALEXION PHARMACEUTICALS
  Company Number: CA-AstraZeneca-CH-00818232A

PATIENT
  Age: 48 Year
  Sex: Female

DRUGS (5)
  1. SOLIRIS [Suspect]
     Active Substance: ECULIZUMAB
     Indication: Myasthenia gravis
     Dosage: 900 MILLIGRAM, QW
     Dates: start: 20230801
  2. SOLIRIS [Suspect]
     Active Substance: ECULIZUMAB
  3. SOLIRIS [Suspect]
     Active Substance: ECULIZUMAB
     Dosage: 1200 MILLIGRAM, Q2W
     Dates: start: 20230912
  4. PREDNISONE [Concomitant]
     Active Substance: PREDNISONE
     Route: 065
  5. CELLCEPT [Concomitant]
     Active Substance: MYCOPHENOLATE MOFETIL
     Dosage: 500, UNK, BID
     Route: 065

REACTIONS (9)
  - Myasthenia gravis [Unknown]
  - Face oedema [Unknown]
  - General physical health deterioration [Unknown]
  - Viral infection [Unknown]
  - Choking [Unknown]
  - Asthenia [Recovered/Resolved]
  - Insurance issue [Unknown]
  - Muscular weakness [Unknown]
  - Throat tightness [Unknown]

NARRATIVE: CASE EVENT DATE: 20250221
